FAERS Safety Report 19015278 (Version 5)
Quarter: 2022Q3

REPORT INFORMATION
  Report Type: Report from Study
  Country: US (occurrence: US)
  Receive Date: 20210317
  Receipt Date: 20220711
  Transmission Date: 20221026
  Serious: Yes (Other)
  Sender: FDA-Public Use
  Company Number: NVSC2021US061037

PATIENT
  Sex: Female

DRUGS (1)
  1. PROMACTA [Suspect]
     Active Substance: ELTROMBOPAG OLAMINE
     Indication: Thrombocytopenia
     Dosage: 25 MG
     Route: 048
     Dates: start: 20200802

REACTIONS (7)
  - Haemorrhage [Unknown]
  - General physical health deterioration [Unknown]
  - Product dose omission issue [Unknown]
  - Platelet count decreased [Unknown]
  - Mental disorder [Unknown]
  - Contusion [Unknown]
  - Swelling [Unknown]
